FAERS Safety Report 4868052-2 (Version None)
Quarter: 2005Q4

REPORT INFORMATION
  Report Type: 
  Country: None (occurrence: None)
  Receive Date: 20051227
  Receipt Date: 20051227
  Transmission Date: 20060501
  Serious: Yes (Life-Threatening, Hospitalization, Disabling)
  Sender: FDA-Public Use
  Company Number: None

PATIENT
  Age: 12 Year
  Sex: Female
  Weight: 69.4003 kg

DRUGS (1)
  1. ORTHO EVRA [Suspect]
     Indication: MOOD SWINGS
     Dosage: 1 PATCH 1 PATCH WEEKLY TRANSDERMAL
     Route: 062
     Dates: start: 20040404, end: 20040415

REACTIONS (1)
  - DEEP VEIN THROMBOSIS [None]
